FAERS Safety Report 4443488-2 (Version None)
Quarter: 2004Q3

REPORT INFORMATION
  Report Type: 
  Country: None (occurrence: None)
  Receive Date: 20040908
  Receipt Date: 20040827
  Transmission Date: 20050211
  Serious: Yes (Hospitalization, Other)
  Sender: FDA-Public Use
  Company Number: US-BRISTOL-MYERS SQUIBB COMPANY-12685996

PATIENT
  Age: 5 Year
  Sex: Female
  Weight: 45 kg

DRUGS (2)
  1. ABILIFY [Suspect]
     Indication: AGGRESSION
     Dosage: 10 MG DEC-03; 15 MG; THEN 10 MG ONE TABLET ONCE A DAY DURING FEB-04 HOSP.
     Route: 048
     Dates: start: 20031203
  2. ABILIFY [Suspect]
     Indication: BIPOLAR DISORDER
     Dosage: 10 MG DEC-03; 15 MG; THEN 10 MG ONE TABLET ONCE A DAY DURING FEB-04 HOSP.
     Route: 048
     Dates: start: 20031203

REACTIONS (2)
  - AGGRESSION [None]
  - CARDIAC MURMUR [None]
